FAERS Safety Report 5597081-9 (Version None)
Quarter: 2008Q1

REPORT INFORMATION
  Report Type: 
  Country: None (occurrence: None)
  Receive Date: 20080121
  Receipt Date: 20080110
  Transmission Date: 20080703
  Serious: Yes (Hospitalization)
  Sender: FDA-Public Use
  Company Number: PHHO2008US00743

PATIENT
  Age: 34 Year
  Sex: Male
  Weight: 80.2 kg

DRUGS (14)
  1. ACYCLOVIR [Concomitant]
  2. BIAXIN [Concomitant]
  3. DECADRON [Concomitant]
  4. POTASSIUM CHLORIDE [Concomitant]
  5. LOTREL [Concomitant]
  6. MEPRON [Concomitant]
  7. VITAMIN CAP [Concomitant]
  8. PREDNISONE [Concomitant]
  9. SIROLIMUS [Concomitant]
  10. TACROLIMUS [Concomitant]
  11. TOPAMAX [Concomitant]
  12. CEFUROXIME [Concomitant]
     Indication: UPPER RESPIRATORY TRACT INFECTION
  13. ALBUTEROL [Concomitant]
     Indication: UPPER RESPIRATORY TRACT INFECTION
  14. ALDESLEUKIN [Suspect]
     Indication: CHRONIC GRAFT VERSUS HOST DISEASE
     Dosage: 0.0000003 IU/M2, QD
     Route: 058
     Dates: start: 20071128, end: 20071223

REACTIONS (5)
  - HAEMOLYTIC URAEMIC SYNDROME [None]
  - HAEMOPHILUS SEPSIS [None]
  - PAIN [None]
  - PYREXIA [None]
  - THROMBOCYTOPENIA [None]
